FAERS Safety Report 23970028 (Version 1)
Quarter: 2024Q2

REPORT INFORMATION
  Report Type: Report from Study
  Country: PL (occurrence: PL)
  Receive Date: 20240613
  Receipt Date: 20240613
  Transmission Date: 20240716
  Serious: Yes (Hospitalization, Other)
  Sender: FDA-Public Use
  Company Number: PL-ROCHE-3552088

PATIENT
  Age: 16 Year
  Sex: Male

DRUGS (13)
  1. CYCLOSPORINE [Suspect]
     Active Substance: CYCLOSPORINE
     Indication: Prophylaxis against graft versus host disease
     Dosage: UNK
     Route: 065
  2. MELPHALAN [Suspect]
     Active Substance: MELPHALAN
     Indication: Myelodysplastic syndrome
     Dosage: UNK
     Route: 065
  3. BUSULFAN [Suspect]
     Active Substance: BUSULFAN
     Indication: Myelodysplastic syndrome
     Dosage: UNK
     Route: 065
  4. METHOTREXATE [Suspect]
     Active Substance: METHOTREXATE
     Indication: Prophylaxis against graft versus host disease
     Dosage: UNK
     Route: 065
  5. RITUXIMAB [Suspect]
     Active Substance: RITUXIMAB
     Indication: Antiviral prophylaxis
     Dosage: 150 MILLIGRAM/SQ. METER
     Route: 065
  6. THYMOGLOBULIN [Suspect]
     Active Substance: LAPINE T-LYMPHOCYTE IMMUNE GLOBULIN
     Indication: Myelodysplastic syndrome
     Dosage: UNK
     Route: 065
  7. THYMOGLOBULIN [Suspect]
     Active Substance: LAPINE T-LYMPHOCYTE IMMUNE GLOBULIN
     Indication: Bone marrow conditioning regimen
  8. CYCLOPHOSPHAMIDE [Suspect]
     Active Substance: CYCLOPHOSPHAMIDE
     Indication: Myelodysplastic syndrome
     Dosage: UNK
     Route: 065
  9. CYTARABINE [Suspect]
     Active Substance: CYTARABINE
     Indication: Allogenic stem cell transplantation
     Dosage: UNK
     Route: 065
  10. FLUDARABINE [Suspect]
     Active Substance: FLUDARABINE PHOSPHATE
     Indication: Allogenic stem cell transplantation
     Dosage: UNK
     Route: 065
  11. ETOPOSIDE [Suspect]
     Active Substance: ETOPOSIDE
     Indication: Allogenic stem cell transplantation
     Dosage: UNK
     Route: 065
  12. RUXOLITINIB [Concomitant]
     Active Substance: RUXOLITINIB
     Indication: Product used for unknown indication
     Dosage: UNK (2 * 5 MG TO THE MAXIMAL DOSE 2 * 10 MG)
     Route: 065
  13. PREDNISONE [Concomitant]
     Active Substance: PREDNISONE
     Indication: Product used for unknown indication
     Dosage: 1 MILLIGRAM/KILOGRAM
     Route: 065

REACTIONS (10)
  - Chronic graft versus host disease in skin [Unknown]
  - Scleroderma [Unknown]
  - Cytomegalovirus infection reactivation [Unknown]
  - Gastrointestinal inflammation [Unknown]
  - Hypogammaglobulinaemia [Unknown]
  - Bronchiolitis obliterans syndrome [Recovering/Resolving]
  - Epstein-Barr viraemia [Recovered/Resolved]
  - Thrombocytopenia [Recovered/Resolved]
  - Staphylococcal bacteraemia [Recovered/Resolved]
  - Mucosal inflammation [Unknown]
